FAERS Safety Report 12853399 (Version 1)
Quarter: 2016Q4

REPORT INFORMATION
  Report Type: Spontaneous
  Country: IT (occurrence: IT)
  Receive Date: 20161017
  Receipt Date: 20161017
  Transmission Date: 20170207
  Serious: Yes (Other)
  Sender: FDA-Public Use
  Company Number: IT-TEVA-699833ACC

PATIENT
  Age: 88 Year
  Sex: Female

DRUGS (6)
  1. ARMOLIPID PLUS [Concomitant]
  2. BLOPRESS -  8 MG COMPRESSE [Concomitant]
     Indication: PRODUCT USED FOR UNKNOWN INDICATION
     Dosage: 8 MG
     Route: 048
  3. CLARITHROMYCIN. [Suspect]
     Active Substance: CLARITHROMYCIN
     Indication: TOOTH ABSCESS
     Dosage: 500 MILLIGRAM DAILY;
     Route: 048
     Dates: start: 20160919, end: 20160923
  4. PANTORC - 20 MG CPR GASTRORESISTENTI [Concomitant]
     Indication: PRODUCT USED FOR UNKNOWN INDICATION
     Dosage: 20 MG
     Route: 048
  5. TIKLID - 250 MG COMPRESSE RIVESTITE [Concomitant]
     Indication: PRODUCT USED FOR UNKNOWN INDICATION
     Dosage: 500 MG
     Route: 048
  6. ALENDRONATE SODIUM. [Concomitant]
     Active Substance: ALENDRONATE SODIUM
     Indication: PRODUCT USED FOR UNKNOWN INDICATION

REACTIONS (3)
  - Hallucinations, mixed [Recovered/Resolved]
  - Visual impairment [Recovered/Resolved]
  - Auditory disorder [Recovered/Resolved]

NARRATIVE: CASE EVENT DATE: 20160919
